FAERS Safety Report 6604747-8 (Version None)
Quarter: 2010Q1

REPORT INFORMATION
  Report Type: 
  Country: None (occurrence: None)
  Receive Date: 20100226
  Receipt Date: 20091209
  Transmission Date: 20100710
  Serious: No
  Sender: FDA-Public Use
  Company Number: US-BRISTOL-MYERS SQUIBB COMPANY-14888028

PATIENT
  Age: 67 Year
  Sex: Female
  Weight: 111 kg

DRUGS (5)
  1. ONGLYZA [Suspect]
     Indication: TYPE 2 DIABETES MELLITUS
     Dates: start: 20090101
  2. LASIX [Concomitant]
  3. NEXIUM [Concomitant]
  4. SYNTHROID [Concomitant]
  5. NORVASC [Concomitant]

REACTIONS (4)
  - CHEST DISCOMFORT [None]
  - DIZZINESS [None]
  - DYSPEPSIA [None]
  - HYPERHIDROSIS [None]
